FAERS Safety Report 25219865 (Version 1)
Quarter: 2025Q2

REPORT INFORMATION
  Report Type: Spontaneous
  Country: US (occurrence: US)
  Receive Date: 20250421
  Receipt Date: 20250421
  Transmission Date: 20250717
  Serious: Yes (Other)
  Sender: AMGEN
  Company Number: US-AMGEN-USASP2025077309

PATIENT
  Age: 15 Year
  Sex: Male

DRUGS (5)
  1. ADALIMUMAB [Suspect]
     Active Substance: ADALIMUMAB
     Indication: Crohn^s disease
     Route: 065
  2. FIDAXOMICIN [Concomitant]
     Active Substance: FIDAXOMICIN
     Indication: Prophylaxis
     Dosage: 200 MILLIGRAM, BID
     Route: 065
  3. FIDAXOMICIN [Concomitant]
     Active Substance: FIDAXOMICIN
     Dosage: 200 MILLIGRAM, QD
     Route: 065
  4. VANCOMYCIN [Concomitant]
     Active Substance: VANCOMYCIN
     Indication: Clostridium difficile infection
     Route: 065
  5. VANCOMYCIN [Concomitant]
     Active Substance: VANCOMYCIN
     Route: 065

REACTIONS (1)
  - Clostridium difficile infection [Unknown]
